FAERS Safety Report 6626051-4 (Version None)
Quarter: 2010Q1

REPORT INFORMATION
  Report Type: 
  Country: None (occurrence: None)
  Receive Date: 20100310
  Receipt Date: 20100303
  Transmission Date: 20100710
  Serious: Yes (Congenital Anomaly)
  Sender: FDA-Public Use
  Company Number: A0790153A

PATIENT
  Sex: Male

DRUGS (4)
  1. PAXIL [Suspect]
     Indication: DEPRESSION
     Dosage: 20MG PER DAY
     Dates: start: 20011101, end: 20030501
  2. PAROXETINE HYDROCHLORIDE [Suspect]
     Indication: DEPRESSION
     Dosage: 40MG PER DAY
     Dates: start: 20030601, end: 20050101
  3. INSULIN [Concomitant]
  4. VITAMIN TAB [Concomitant]

REACTIONS (9)
  - CEREBROVASCULAR ACCIDENT [None]
  - DRUG EXPOSURE DURING PREGNANCY [None]
  - FALLOT'S TETRALOGY [None]
  - HYPOSPADIAS [None]
  - LUNG DISORDER [None]
  - MULTIPLE CONGENITAL ABNORMALITIES [None]
  - POLYDACTYLY [None]
  - TORTICOLLIS [None]
  - VENTRICULAR SEPTAL DEFECT [None]
